FAERS Safety Report 19633729 (Version 1)
Quarter: 2021Q3

REPORT INFORMATION
  Report Type: Spontaneous
  Country: US (occurrence: US)
  Receive Date: 20210729
  Receipt Date: 20210729
  Transmission Date: 20211014
  Serious: Yes (Hospitalization, Other)
  Sender: FDA-Public Use
  Company Number: None

PATIENT
  Age: 12 Month
  Sex: Male

DRUGS (7)
  1. SPIRONOLACT [Concomitant]
     Active Substance: SPIRONOLACTONE
  2. DIGOXIN. [Concomitant]
     Active Substance: DIGOXIN
  3. LOVENOX [Concomitant]
     Active Substance: ENOXAPARIN SODIUM
  4. LANSOPRAZOLE. [Concomitant]
     Active Substance: LANSOPRAZOLE
  5. SILDENAFIL SUSP [Suspect]
     Active Substance: SILDENAFIL
     Indication: PULMONARY HYPERTENSION
     Dosage: ?          OTHER FREQUENCY:Q 8 HOURS;?
     Route: 048
     Dates: start: 20210412
  6. SOD CHLORIDE NEB [Concomitant]
  7. BUMETANIDE. [Concomitant]
     Active Substance: BUMETANIDE

REACTIONS (2)
  - Hiatus hernia [None]
  - Therapy interrupted [None]

NARRATIVE: CASE EVENT DATE: 20210630
